FAERS Safety Report 5981610-7 (Version None)
Quarter: 2008Q4

REPORT INFORMATION
  Report Type: 
  Country: None (occurrence: None)
  Receive Date: 20081205
  Receipt Date: 20081127
  Transmission Date: 20090506
  Serious: Yes (Other)
  Sender: FDA-Public Use
  Company Number: CN-JNJFOC-20081105703

PATIENT
  Age: 2 Year
  Sex: Male
  Weight: 16.5 kg

DRUGS (3)
  1. TYLENOL (CAPLET) [Suspect]
     Indication: NASOPHARYNGITIS
  2. CEFACLOR [Concomitant]
     Indication: ANTIBIOTIC THERAPY
     Route: 048
  3. ANTITUSSIVE [Concomitant]
     Indication: ANTITUSSIVE THERAPY
     Route: 048

REACTIONS (2)
  - ACCIDENTAL OVERDOSE [None]
  - WRONG TECHNIQUE IN DRUG USAGE PROCESS [None]
